FAERS Safety Report 14470364 (Version 2)
Quarter: 2024Q1

REPORT INFORMATION
  Report Type: Spontaneous
  Country: US (occurrence: US)
  Receive Date: 20180131
  Receipt Date: 20240305
  Transmission Date: 20240410
  Serious: No
  Sender: FDA-Public Use
  Company Number: US-BIOGEN-2018BI00515837

PATIENT
  Age: 23 Year
  Sex: Male

DRUGS (2)
  1. SPINRAZA [Suspect]
     Active Substance: NUSINERSEN
     Indication: Spinal muscular atrophy
     Route: 050
     Dates: start: 20170721
  2. EXCEDRIN [Concomitant]
     Active Substance: ACETAMINOPHEN\ASPIRIN\CAFFEINE
     Indication: Product used for unknown indication
     Route: 050

REACTIONS (4)
  - Neck pain [Not Recovered/Not Resolved]
  - Procedural pain [Unknown]
  - Post lumbar puncture syndrome [Not Recovered/Not Resolved]
  - Back pain [Not Recovered/Not Resolved]

NARRATIVE: CASE EVENT DATE: 20240223
